FAERS Safety Report 14978283 (Version 1)
Quarter: 2018Q2

REPORT INFORMATION
  Report Type: Spontaneous
  Country: US (occurrence: US)
  Receive Date: 20180606
  Receipt Date: 20180606
  Transmission Date: 20180711
  Serious: No
  Sender: FDA-Public Use
  Company Number: US-ASTRAZENECA-2018SE62722

PATIENT
  Sex: Male
  Weight: 104.3 kg

DRUGS (1)
  1. SYMBICORT [Suspect]
     Active Substance: BUDESONIDE\FORMOTEROL FUMARATE DIHYDRATE
     Indication: CHRONIC OBSTRUCTIVE PULMONARY DISEASE
     Dosage: 160/4.5 MCG, 2 PUFFS TWICE DAILY
     Route: 055
     Dates: start: 201804

REACTIONS (7)
  - Incorrect dose administered [Unknown]
  - Product quality issue [Unknown]
  - Intentional device misuse [Unknown]
  - Off label use [Unknown]
  - Product use issue [Unknown]
  - Visual acuity reduced [Unknown]
  - Wrong technique in product usage process [Unknown]
